FAERS Safety Report 17407764 (Version 1)
Quarter: 2020Q1

REPORT INFORMATION
  Report Type: Spontaneous
  Country: US (occurrence: US)
  Receive Date: 20200212
  Receipt Date: 20200212
  Transmission Date: 20200409
  Serious: No
  Sender: FDA-Public Use
  Company Number: US-PFIZER INC-2020060902

PATIENT
  Age: 30 Year
  Sex: Female

DRUGS (2)
  1. PREDNISONE. [Concomitant]
     Active Substance: PREDNISONE
     Dosage: UNK
  2. XELJANZ [Suspect]
     Active Substance: TOFACITINIB CITRATE
     Indication: RHEUMATOID ARTHRITIS
     Dosage: 5 MG, TWICE DAILY
     Route: 048
     Dates: start: 201803

REACTIONS (7)
  - Dermatitis allergic [Unknown]
  - Condition aggravated [Unknown]
  - Discomfort [Unknown]
  - Product dose omission [Unknown]
  - Pain [Recovering/Resolving]
  - Fatigue [Unknown]
  - Blood test abnormal [Unknown]

NARRATIVE: CASE EVENT DATE: 202001
